FAERS Safety Report 14805520 (Version 1)
Quarter: 2018Q2

REPORT INFORMATION
  Report Type: Spontaneous
  Country: KR (occurrence: KR)
  Receive Date: 20180425
  Receipt Date: 20180425
  Transmission Date: 20180711
  Serious: Yes (Other)
  Sender: FDA-Public Use
  Company Number: KR-SA-2018SA108782

PATIENT
  Age: 64 Year
  Sex: Male

DRUGS (8)
  1. CARBOPLATIN. [Concomitant]
     Active Substance: CARBOPLATIN
     Indication: LUNG ADENOCARCINOMA STAGE IV
     Dosage: AREA UNDER PLASMA CONCENTRATION-TIME CURVE (AUC) = 6 MG/MLXMIN, EVERY THREE WEEKS
     Route: 042
     Dates: start: 2017, end: 2017
  2. CEFPODOXIME [Concomitant]
     Active Substance: CEFPODOXIME
     Indication: PNEUMONIA
  3. WARFARIN [Concomitant]
     Active Substance: WARFARIN
     Route: 065
  4. DOCETAXEL. [Suspect]
     Active Substance: DOCETAXEL
     Indication: LUNG ADENOCARCINOMA STAGE IV
     Route: 042
     Dates: start: 2017, end: 2017
  5. CANDESARTAN. [Concomitant]
     Active Substance: CANDESARTAN
     Route: 065
  6. GEMIFLOXACIN [Concomitant]
     Active Substance: GEMIFLOXACIN
     Indication: PNEUMONIA
  7. DOCETAXEL. [Suspect]
     Active Substance: DOCETAXEL
     Indication: LUNG ADENOCARCINOMA STAGE IV
     Route: 042
     Dates: start: 2017, end: 2017
  8. CARBOPLATIN. [Concomitant]
     Active Substance: CARBOPLATIN
     Indication: LUNG ADENOCARCINOMA STAGE IV
     Dosage: AREA UNDER PLASMA CONCENTRATION-TIME CURVE (AUC) = 6 MG/MLXMIN, EVERY THREE WEEKS
     Route: 042
     Dates: start: 2017, end: 2017

REACTIONS (3)
  - Chondritis [Not Recovered/Not Resolved]
  - Ear deformity acquired [Not Recovered/Not Resolved]
  - Osteonecrosis [Not Recovered/Not Resolved]
